FAERS Safety Report 20796164 (Version 2)
Quarter: 2022Q4

REPORT INFORMATION
  Report Type: Spontaneous
  Country: US (occurrence: US)
  Receive Date: 20220506
  Receipt Date: 20221031
  Transmission Date: 20230113
  Serious: Yes (Hospitalization)
  Sender: FDA-Public Use
  Company Number: US-PFIZER INC-202200400083

PATIENT
  Age: 63 Year
  Sex: Male
  Weight: 65.76 kg

DRUGS (15)
  1. BRAFTOVI [Suspect]
     Active Substance: ENCORAFENIB
     Indication: Colon cancer
     Dosage: 300 MG, CYCLIC (DAYS 1-28)
     Route: 048
     Dates: start: 20211213, end: 20211221
  2. BRAFTOVI [Suspect]
     Active Substance: ENCORAFENIB
     Dosage: 225 MG, CYCLIC (ONCE DAILY, FROM CYCLE #2)
     Route: 048
  3. BRAFTOVI [Suspect]
     Active Substance: ENCORAFENIB
     Dosage: 75 MG
  4. ERBITUX [Concomitant]
     Active Substance: CETUXIMAB
     Indication: Colon cancer
     Dosage: UNK, CYCLIC (DAYS 1 AND 15)
     Dates: start: 20211213, end: 20211221
  5. ERBITUX [Concomitant]
     Active Substance: CETUXIMAB
     Dosage: UNK, CYCLIC
     Dates: start: 20220418
  6. NEUPOGEN [Concomitant]
     Active Substance: FILGRASTIM
     Dosage: 300 UG, CYCLIC (INJECT 300 MCG ONCE A DAY FOR 5 DAYS STARTING DAY AFTER CHEMOTHERAPY)
     Dates: start: 20210628
  7. METFORMIN HYDROCHLORIDE [Concomitant]
     Active Substance: METFORMIN HYDROCHLORIDE
     Dosage: 500 MG, 2X/DAY
     Route: 048
     Dates: start: 20200804, end: 20220402
  8. GABAPENTIN [Concomitant]
     Active Substance: GABAPENTIN
     Dosage: 400 MG, 3X/DAY
     Route: 048
     Dates: start: 20201130, end: 20220127
  9. LIDOCAINE\PRILOCAINE HYDROCHLORIDE [Concomitant]
     Active Substance: LIDOCAINE\PRILOCAINE HYDROCHLORIDE
     Dosage: UNK (2.5-2.5%, APPLY 1 HOUR BEFORE PROCEDURE AS DIRECTED)
     Route: 061
     Dates: start: 20200206
  10. ONDANSETRON HCL [Concomitant]
     Active Substance: ONDANSETRON HYDROCHLORIDE
     Indication: Nausea
     Dosage: 8 MG, AS NEEDED (TAKE 1 PO EVERY 8 HOURS PRN FOR NAUSEA)
     Route: 048
     Dates: start: 20200130
  11. PROCHLORPERAZINE MALEATE [Concomitant]
     Active Substance: PROCHLORPERAZINE MALEATE
     Indication: Nausea
     Dosage: 10 MG, AS NEEDED (TAKE 1 TAB EVERY 8 HOURS PRN)
     Route: 048
     Dates: start: 20200130
  12. ACETAMINOPHEN\HYDROCODONE [Concomitant]
     Active Substance: ACETAMINOPHEN\HYDROCODONE
     Indication: Pain
     Dosage: EVERY 4 TO 6 HOURS AS NEEDED
     Route: 048
     Dates: start: 20211221
  13. ALLERGY FORMULA [Concomitant]
     Dosage: 4 MG
     Route: 048
     Dates: start: 20200122
  14. LOVENOX [Concomitant]
     Active Substance: ENOXAPARIN SODIUM
     Dosage: 100 MG/ML
     Route: 058
     Dates: start: 20200122
  15. TYLENOL [Concomitant]
     Active Substance: ACETAMINOPHEN
     Dosage: 325 MG, AS NEEDED
     Route: 048
     Dates: start: 20200122

REACTIONS (6)
  - Colostomy [Unknown]
  - Infection [Unknown]
  - Myalgia [Recovered/Resolved]
  - Arthralgia [Recovered/Resolved]
  - Headache [Recovered/Resolved]
  - Illness [Unknown]

NARRATIVE: CASE EVENT DATE: 20211220
